FAERS Safety Report 9249319 (Version 1)
Quarter: 2013Q2

REPORT INFORMATION
  Report Type: Spontaneous
  Country: CA (occurrence: CA)
  Receive Date: 20130423
  Receipt Date: 20130423
  Transmission Date: 20140414
  Serious: Yes (Death)
  Sender: FDA-Public Use
  Company Number: CA-009507513-1304CAN013317

PATIENT
  Age: 3 Year
  Sex: Male

DRUGS (5)
  1. CASPOFUNGIN ACETATE [Suspect]
     Indication: ACUTE LYMPHOCYTIC LEUKAEMIA
     Dosage: UNK
  2. CASPOFUNGIN ACETATE [Suspect]
     Dosage: UNK
  3. CYCLOPHOSPHAMIDE [Concomitant]
  4. METHYLPREDNISOLONE [Concomitant]
  5. CYCLOSPORINE [Concomitant]

REACTIONS (1)
  - Drug ineffective [Fatal]
